FAERS Safety Report 24317506 (Version 1)
Quarter: 2024Q3

REPORT INFORMATION
  Report Type: Spontaneous
  Country: US (occurrence: None)
  Receive Date: 20240913
  Receipt Date: 20240913
  Transmission Date: 20241017
  Serious: Yes (Hospitalization)
  Sender: Public
  Company Number: None

PATIENT
  Sex: Male

DRUGS (3)
  1. LITFULO [Suspect]
     Active Substance: RITLECITINIB TOSYLATE
     Indication: Alopecia
     Dosage: FREQUENCY : DAILY;?
     Route: 048
     Dates: start: 20240503
  2. GUANFACINE [Concomitant]
  3. RISOERICONE [Concomitant]

REACTIONS (1)
  - Infection [None]
